FAERS Safety Report 5531621-0 (Version None)
Quarter: 2007Q4

REPORT INFORMATION
  Report Type: 
  Country: None (occurrence: None)
  Receive Date: 20071128
  Receipt Date: 20071112
  Transmission Date: 20080405
  Serious: Yes (Hospitalization)
  Sender: FDA-Public Use
  Company Number: S07-GER-06066-01

PATIENT
  Age: 53 Year
  Sex: Female

DRUGS (9)
  1. CITALOPRAM HYDROBROMIDE [Suspect]
     Indication: MAJOR DEPRESSION
     Dosage: 15 MG QD PO
     Route: 048
     Dates: start: 20061101, end: 20070122
  2. CITALOPRAM HYDROBROMIDE [Suspect]
     Indication: PSYCHOTIC DISORDER
     Dosage: 15 MG QD PO
     Route: 048
     Dates: start: 20061101, end: 20070122
  3. HALOPERIDOL [Suspect]
     Indication: MAJOR DEPRESSION
     Dosage: 10 MG QD PO
     Route: 048
     Dates: start: 20070118, end: 20070122
  4. HALOPERIDOL [Suspect]
     Indication: PSYCHOTIC DISORDER
     Dosage: 10 MG QD PO
     Route: 048
     Dates: start: 20070118, end: 20070122
  5. CLOZAPINE [Concomitant]
  6. PANTOZOL (PANTOPRAZOLE SODIUM) [Concomitant]
  7. GASTROZEPIN [Concomitant]
  8. FEMOSTON (ZUMESTON) [Concomitant]
  9. NORVASC [Concomitant]

REACTIONS (12)
  - ABNORMAL BEHAVIOUR [None]
  - AGITATION [None]
  - BLOOD ANTIDIURETIC HORMONE DECREASED [None]
  - BLOOD OSMOLARITY DECREASED [None]
  - BLOOD POTASSIUM DECREASED [None]
  - DELUSION [None]
  - DISTURBANCE IN ATTENTION [None]
  - HYPONATRAEMIA [None]
  - INCOHERENT [None]
  - MAJOR DEPRESSION [None]
  - PSYCHOTIC DISORDER [None]
  - URINE OSMOLARITY DECREASED [None]
